FAERS Safety Report 4804669-9 (Version None)
Quarter: 2005Q4

REPORT INFORMATION
  Report Type: 
  Country: None (occurrence: None)
  Receive Date: 20051020
  Receipt Date: 20050927
  Transmission Date: 20060501
  Serious: Yes (Death, Hospitalization, Other)
  Sender: FDA-Public Use
  Company Number: JP-SANOFI-SYNTHELABO-F01200501971

PATIENT
  Sex: Male
  Weight: 47 kg

DRUGS (4)
  1. OXALIPLATIN [Suspect]
     Indication: COLON CANCER
     Route: 042
     Dates: start: 20050526, end: 20050811
  2. FLUOROURACIL [Suspect]
     Dosage: 576 MG/BODY=400 MG/M2 IN BOLUS THEN 864 MG/BODY=600 MG/M2 AS CONTINUOUS INFUSION, D1+2
     Route: 042
     Dates: start: 20050526, end: 20050812
  3. CALCIUM LEVOFOLINATE [Suspect]
     Route: 042
     Dates: start: 20050526, end: 20050812
  4. BETAMETHASONE [Concomitant]
     Dates: start: 20050905, end: 20050905

REACTIONS (8)
  - ALANINE AMINOTRANSFERASE INCREASED [None]
  - ASPARTATE AMINOTRANSFERASE INCREASED [None]
  - BLOOD CREATININE INCREASED [None]
  - HAEMOGLOBIN DECREASED [None]
  - HEPATIC FAILURE [None]
  - MELAENA [None]
  - SOMNOLENCE [None]
  - TUMOUR MARKER INCREASED [None]
